FAERS Safety Report 11965013 (Version 1)
Quarter: 2016Q1

REPORT INFORMATION
  Report Type: Spontaneous
  Country: GB (occurrence: GB)
  Receive Date: 20160127
  Receipt Date: 20160127
  Transmission Date: 20160526
  Serious: Yes (Other)
  Sender: FDA-Public Use
  Company Number: GB-GLAXOSMITHKLINE-GB2016006832

PATIENT
  Age: 2 Year

DRUGS (1)
  1. SALBUTAMOL [Suspect]
     Active Substance: ALBUTEROL
     Indication: PRODUCT USED FOR UNKNOWN INDICATION
     Route: 042

REACTIONS (4)
  - Documented hypersensitivity to administered product [Unknown]
  - Oxygen saturation decreased [Unknown]
  - Grunting [Unknown]
  - Tachycardia [Unknown]

NARRATIVE: CASE EVENT DATE: 20151222
